FAERS Safety Report 9449401 (Version 2)
Quarter: 2013Q3

REPORT INFORMATION
  Report Type: Spontaneous
  Country: JP (occurrence: JP)
  Receive Date: 20130809
  Receipt Date: 20130829
  Transmission Date: 20140515
  Serious: Yes (Hospitalization, Other)
  Sender: FDA-Public Use
  Company Number: JP-AMGEN-JPNSP2013055805

PATIENT
  Age: 83 Year
  Sex: Female

DRUGS (8)
  1. ENBREL [Suspect]
     Indication: RHEUMATOID ARTHRITIS
     Dosage: UNK UNK, QWK
     Route: 065
     Dates: end: 20130804
  2. RHEUMATREX /00113801/ [Suspect]
     Indication: RHEUMATOID ARTHRITIS
     Dosage: 6 MG, WEEKLY (4 MG FOR MORNING, 2 MG FOR EVENING)
     Route: 048
  3. PREDNISOLONE [Concomitant]
     Dosage: UNK
  4. FOLIAMIN [Concomitant]
     Dosage: UNK
  5. BAKTAR [Concomitant]
     Dosage: UNK
  6. ZOPICOOL [Concomitant]
     Dosage: UNK
  7. BENET [Concomitant]
     Dosage: UNK
  8. EDIROL [Concomitant]
     Dosage: UNK

REACTIONS (1)
  - Gastric cancer [Not Recovered/Not Resolved]
